FAERS Safety Report 8435271 (Version 9)
Quarter: 2013Q1

REPORT INFORMATION
  Report Type: Spontaneous
  Country: US (occurrence: US)
  Receive Date: 20120301
  Receipt Date: 20130115
  Transmission Date: 20140127
  Serious: Yes (Hospitalization, Other)
  Sender: FDA-Public Use
  Company Number: US-JNJFOC-20120212393

PATIENT
  Age: 17 Year
  Sex: Male

DRUGS (5)
  1. REMICADE [Suspect]
     Indication: CROHN^S DISEASE
     Route: 042
     Dates: start: 20111010, end: 20111018
  2. REMICADE [Suspect]
     Indication: CROHN^S DISEASE
     Dosage: 6 MG/KG
     Route: 042
     Dates: start: 20101123
  3. ASACOL [Concomitant]
  4. 6-MP [Concomitant]
     Dates: start: 2006, end: 201011
  5. CORTICOSTEROID [Concomitant]

REACTIONS (1)
  - Hepatosplenic T-cell lymphoma [Unknown]
